FAERS Safety Report 6217021-9 (Version None)
Quarter: 2009Q2

REPORT INFORMATION
  Report Type: 
  Country: None (occurrence: None)
  Receive Date: 20090604
  Receipt Date: 20090601
  Transmission Date: 20091009
  Serious: Yes (Death, Hospitalization)
  Sender: FDA-Public Use
  Company Number: 1000006479

PATIENT
  Age: 26 Year
  Sex: Male

DRUGS (2)
  1. CARBAMAZEPINE [Suspect]
     Indication: BIPOLAR DISORDER
  2. HEPARIN [Suspect]
     Indication: ANTICOAGULANT THERAPY

REACTIONS (12)
  - CARDIAC FAILURE [None]
  - DIALYSIS [None]
  - EYE DISORDER [None]
  - GASTROINTESTINAL DISORDER [None]
  - HEPARIN-INDUCED THROMBOCYTOPENIA [None]
  - ILIAC ARTERY OCCLUSION [None]
  - PERIPHERAL ARTERIAL OCCLUSIVE DISEASE [None]
  - PERIPHERAL COLDNESS [None]
  - PULMONARY EMBOLISM [None]
  - RENAL FAILURE [None]
  - THROMBOSIS [None]
  - TOXIC EPIDERMAL NECROLYSIS [None]
